FAERS Safety Report 7508597-X (Version None)
Quarter: 2011Q2

REPORT INFORMATION
  Report Type: 
  Country: None (occurrence: None)
  Receive Date: 20110527
  Receipt Date: 20101119
  Transmission Date: 20111010
  Serious: No
  Sender: FDA-Public Use
  Company Number: A0894737A

PATIENT
  Age: 55 Year
  Sex: Female
  Weight: 63.5 kg

DRUGS (8)
  1. METOPROLOL TARTRATE [Concomitant]
     Dosage: 25MG UNKNOWN
     Route: 048
  2. SPIRONOLACTONE [Concomitant]
     Dosage: 25MG UNKNOWN
     Route: 048
  3. REVATIO [Concomitant]
     Dosage: 20MG UNKNOWN
     Route: 048
  4. WARFARIN SODIUM [Concomitant]
     Dosage: 5MG UNKNOWN
     Route: 048
  5. FLOLAN [Suspect]
  6. FLOLAN [Suspect]
     Dosage: 22NGKM UNKNOWN
     Route: 042
     Dates: start: 20070412
  7. LASIX [Concomitant]
     Dosage: 40MG UNKNOWN
     Route: 048
  8. OXYGEN [Concomitant]

REACTIONS (2)
  - PAIN IN JAW [None]
  - DIARRHOEA [None]
